FAERS Safety Report 5413953-X (Version None)
Quarter: 2007Q3

REPORT INFORMATION
  Report Type: 
  Country: None (occurrence: None)
  Receive Date: 20070814
  Receipt Date: 20070731
  Transmission Date: 20080115
  Serious: No
  Sender: FDA-Public Use
  Company Number: US-BOEHRINGER INGELHEIM PHARMACEUTICALS, INC.-2007-BP-18294BP

PATIENT
  Sex: Female

DRUGS (4)
  1. CATAPRES-TTS-1 [Suspect]
     Indication: HYPERTENSION
     Route: 061
  2. AVAPRO [Concomitant]
     Indication: ATRIAL FIBRILLATION
  3. LORAZEPAM [Concomitant]
     Indication: ANXIETY
  4. WELLBUTRIN [Concomitant]
     Indication: DEPRESSION

REACTIONS (2)
  - APPLICATION SITE ERYTHEMA [None]
  - APPLICATION SITE IRRITATION [None]
